FAERS Safety Report 5008930-7 (Version None)
Quarter: 2006Q2

REPORT INFORMATION
  Report Type: 
  Country: None (occurrence: None)
  Receive Date: 20060518
  Receipt Date: 20060505
  Transmission Date: 20061013
  Serious: Yes (Other)
  Sender: FDA-Public Use
  Company Number: TRP_0774_2006

PATIENT
  Age: 39 Year
  Sex: Male

DRUGS (11)
  1. RIBASPHERE [Suspect]
     Indication: HEPATITIS C
     Dosage: DF PO
     Route: 048
     Dates: start: 20060113, end: 20060224
  2. RIBASPHERE [Suspect]
     Indication: HEPATITIS C
     Dosage: DF PO
     Route: 048
     Dates: start: 20060423
  3. PEG-INTRON [Suspect]
     Indication: HEPATITIS C
     Dosage: DF PO
     Route: 048
     Dates: start: 20060113, end: 20060224
  4. PEG-INTRON [Suspect]
     Indication: HEPATITIS C
     Dosage: DF PO
     Route: 048
     Dates: start: 20060423
  5. ACYCLOVIR [Concomitant]
  6. METHADONE HCL [Concomitant]
  7. NEUPOGEN [Concomitant]
  8. PREVACID [Concomitant]
  9. PROCRIT [Concomitant]
  10. PROGRAF [Concomitant]
  11. URSODEOXYCHOLIC ACID [Concomitant]

REACTIONS (4)
  - HALLUCINATION, VISUAL [None]
  - MEMORY IMPAIRMENT [None]
  - RED BLOOD CELL COUNT DECREASED [None]
  - WHITE BLOOD CELL COUNT DECREASED [None]
